FAERS Safety Report 5168423-3 (Version None)
Quarter: 2006Q4

REPORT INFORMATION
  Report Type: 
  Country: None (occurrence: None)
  Receive Date: 20061208
  Receipt Date: 20061020
  Transmission Date: 20070319
  Serious: No
  Sender: FDA-Public Use
  Company Number: 2006UW20365

PATIENT
  Age: 21253 Day
  Sex: Female
  Weight: 84.5 kg

DRUGS (1)
  1. CRESTOR [Suspect]
     Indication: DYSLIPIDAEMIA
     Route: 048
     Dates: start: 20040909, end: 20060921

REACTIONS (1)
  - HYPERKALAEMIA [None]
